FAERS Safety Report 8449753-6 (Version None)
Quarter: 2012Q2

REPORT INFORMATION
  Report Type: 
  Country: None (occurrence: None)
  Receive Date: 20120613
  Receipt Date: 20120531
  Transmission Date: 20120825
  Serious: Yes (Other)
  Sender: FDA-Public Use
  Company Number: 2012AP001571

PATIENT
  Age: 65 Year
  Sex: Male

DRUGS (4)
  1. SIMVASTATIN [Concomitant]
  2. TAMSULOSIN HYDROCHLORIDE [Concomitant]
  3. AZELASTINE HYDROCHLORIDE [Suspect]
     Indication: RHINITIS ALLERGIC
     Dosage: 2 SPR; BID; NAS
     Route: 045
     Dates: start: 20111101, end: 20120523
  4. LEVOTHYROXINE [Concomitant]

REACTIONS (1)
  - PROSTATIC SPECIFIC ANTIGEN INCREASED [None]
